FAERS Safety Report 9393206 (Version 1)
Quarter: 2013Q3

REPORT INFORMATION
  Report Type: Report from Study
  Country: HK (occurrence: HK)
  Receive Date: 20130710
  Receipt Date: 20130710
  Transmission Date: 20140515
  Serious: Yes (Hospitalization)
  Sender: FDA-Public Use
  Company Number: HK-SANOFI-AVENTIS-200811483GDDC

PATIENT
  Age: 62 Year
  Sex: Female
  Weight: 71.6 kg

DRUGS (6)
  1. DOCETAXEL [Suspect]
     Indication: BREAST CANCER FEMALE
     Route: 042
     Dates: start: 20071025, end: 20080124
  2. DOXORUBICIN [Suspect]
     Indication: BREAST CANCER FEMALE
     Route: 042
     Dates: start: 20071025, end: 20080124
  3. CYCLOPHOSPHAMIDE [Suspect]
     Indication: BREAST CANCER FEMALE
     Route: 042
     Dates: start: 20071025, end: 20080124
  4. METFORMIN HYDROCHLORIDE [Concomitant]
  5. GLICLAZIDE [Concomitant]
  6. OLMESARTAN [Concomitant]

REACTIONS (2)
  - Hypoglycaemia [Recovered/Resolved]
  - Renal failure acute [Recovered/Resolved]
